FAERS Safety Report 15486114 (Version 1)
Quarter: 2018Q4

REPORT INFORMATION
  Report Type: Not Available
  Country: US (occurrence: US)
  Receive Date: 20181011
  Receipt Date: 20181011
  Transmission Date: 20190205
  Serious: No
  Sender: FDA-Public Use
  Company Number: US-NEUROCRINE BIOSCIENCES INC.-2018NBI02871

PATIENT
  Age: 70 Year
  Sex: Female
  Weight: 43.99 kg

DRUGS (2)
  1. INGREZZA [Suspect]
     Active Substance: VALBENAZINE
     Route: 048
     Dates: start: 20180908
  2. INGREZZA [Suspect]
     Active Substance: VALBENAZINE
     Indication: DYSKINESIA
     Route: 048
     Dates: start: 20180901, end: 20180907

REACTIONS (2)
  - Peripheral swelling [Unknown]
  - Dyskinesia [Unknown]

NARRATIVE: CASE EVENT DATE: 201809
